FAERS Safety Report 22288837 (Version 6)
Quarter: 2024Q1

REPORT INFORMATION
  Report Type: Spontaneous
  Country: US (occurrence: US)
  Receive Date: 20230505
  Receipt Date: 20240307
  Transmission Date: 20240410
  Serious: Yes (Other)
  Sender: FDA-Public Use
  Company Number: US-PFIZER INC-202300176625

PATIENT
  Age: 71 Year
  Sex: Female

DRUGS (1)
  1. PREMARIN [Suspect]
     Active Substance: ESTROGENS, CONJUGATED
     Indication: Hysterectomy
     Dosage: 0.09 1 XDAYS
     Dates: start: 1997

REACTIONS (9)
  - Neoplasm malignant [Unknown]
  - Drug dependence [Unknown]
  - Illness [Unknown]
  - Malaise [Unknown]
  - Memory impairment [Unknown]
  - Hot flush [Unknown]
  - Back injury [Unknown]
  - Muscle spasms [Unknown]
  - Irritability [Unknown]

NARRATIVE: CASE EVENT DATE: 20230501
